FAERS Safety Report 6546698-3 (Version None)
Quarter: 2010Q1

REPORT INFORMATION
  Report Type: 
  Country: None (occurrence: None)
  Receive Date: 20100122
  Receipt Date: 20100113
  Transmission Date: 20100710
  Serious: Yes (Other)
  Sender: FDA-Public Use
  Company Number: US-MYLANLABS-2010S1000579

PATIENT
  Sex: Male

DRUGS (1)
  1. LEVETIRACETAM [Suspect]
     Indication: CONVULSION
     Route: 048
     Dates: start: 20080601

REACTIONS (2)
  - APPENDICITIS PERFORATED [None]
  - LIPASE INCREASED [None]
